FAERS Safety Report 6571941-4 (Version None)
Quarter: 2010Q1

REPORT INFORMATION
  Report Type: 
  Country: None (occurrence: None)
  Receive Date: 20100205
  Receipt Date: 20100128
  Transmission Date: 20100710
  Serious: Yes (Other)
  Sender: FDA-Public Use
  Company Number: US-ROCHE-682718

PATIENT
  Sex: Male
  Weight: 86.2 kg

DRUGS (1)
  1. CAPECITABINE [Suspect]
     Indication: NEUROENDOCRINE TUMOUR
     Route: 048
     Dates: start: 20091218, end: 20100128

REACTIONS (2)
  - DRUG INEFFECTIVE [None]
  - MALIGNANT NEOPLASM PROGRESSION [None]
